FAERS Safety Report 6158171-5 (Version None)
Quarter: 2009Q2

REPORT INFORMATION
  Report Type: 
  Country: None (occurrence: None)
  Receive Date: 20090417
  Receipt Date: 20090414
  Transmission Date: 20091009
  Serious: Yes (Death)
  Sender: FDA-Public Use
  Company Number: US-ROCHE-623639

PATIENT
  Sex: Female
  Weight: 86.2 kg

DRUGS (1)
  1. CAPECITABINE [Suspect]
     Indication: BREAST CANCER
     Dosage: 1500 MG AM, 1500 MG PM
     Route: 048
     Dates: start: 20090211

REACTIONS (1)
  - DEATH [None]
